FAERS Safety Report 8517560-1 (Version None)
Quarter: 2012Q3

REPORT INFORMATION
  Report Type: 
  Country: None (occurrence: None)
  Receive Date: 20120718
  Receipt Date: 20120612
  Transmission Date: 20120928
  Serious: No
  Sender: FDA-Public Use
  Company Number: US-ASTRAZENECA-2012SE39329

PATIENT
  Age: 70 Year
  Sex: Female
  Weight: 79.4 kg

DRUGS (9)
  1. ZOLOFT [Concomitant]
  2. CRESTOR [Suspect]
     Indication: BLOOD CHOLESTEROL INCREASED
     Route: 048
     Dates: start: 20080101
  3. SYNTHROID [Concomitant]
  4. ZOCOR [Concomitant]
  5. CRESTOR [Suspect]
     Route: 048
  6. LIPITOR [Concomitant]
  7. ASPIRIN [Concomitant]
     Indication: CAROTID ARTERIOSCLEROSIS
  8. OTHER STATINS [Concomitant]
  9. CRESTOR [Suspect]
     Route: 048
     Dates: start: 20120501

REACTIONS (4)
  - PAIN IN EXTREMITY [None]
  - DYSGEUSIA [None]
  - OFF LABEL USE [None]
  - ACCIDENTAL OVERDOSE [None]
